FAERS Safety Report 9943050 (Version 1)
Quarter: 2014Q1

REPORT INFORMATION
  Report Type: Spontaneous
  Country: BR (occurrence: BR)
  Receive Date: 20140303
  Receipt Date: 20140303
  Transmission Date: 20141002
  Serious: Yes (Hospitalization)
  Sender: FDA-Public Use
  Company Number: BR-PFIZER INC-2014056416

PATIENT
  Age: 72 Year
  Sex: Male
  Weight: 99 kg

DRUGS (5)
  1. LIPITOR [Suspect]
     Indication: BLOOD CHOLESTEROL
     Dosage: 20 MG, DAILY
     Route: 048
     Dates: start: 20051118
  2. ALDACTONE [Suspect]
     Indication: HYPERTENSION
     Dosage: 50 MG, DAILY
     Route: 048
     Dates: start: 20131114
  3. CARVEDILOL [Concomitant]
     Indication: HYPERTENSION
     Dosage: 2 DF, DAILY
  4. CLOPIDOGREL [Concomitant]
     Indication: COAGULOPATHY
     Dosage: 1 TABLET, DAILY
  5. DIOVAN [Concomitant]
     Indication: HYPERTENSION
     Dosage: 1 DF, DAILY

REACTIONS (3)
  - Hernia [Unknown]
  - Weight decreased [Unknown]
  - Blood potassium increased [Unknown]
